FAERS Safety Report 4688824-7 (Version None)
Quarter: 2005Q2

REPORT INFORMATION
  Report Type: 
  Country: None (occurrence: None)
  Receive Date: 20050610
  Receipt Date: 20050529
  Transmission Date: 20051028
  Serious: Yes (Other)
  Sender: FDA-Public Use
  Company Number: 2005080503

PATIENT
  Age: 16 Year
  Sex: Male
  Weight: 81.6475 kg

DRUGS (2)
  1. DRAMAMINE DROWSY FORMULA (DIMENHYDRINATE) [Suspect]
     Indication: INTENTIONAL MISUSE
     Dosage: 24 TABLETS WITHIN A FEW HOURS, ORAL
     Route: 048
     Dates: start: 20050529, end: 20050529
  2. DRAMAMINE DROWSY FORMULA (DIMENHYDRINATE) [Suspect]
     Indication: OVERDOSE
     Dosage: 24 TABLETS WITHIN A FEW HOURS, ORAL
     Route: 048
     Dates: start: 20050529, end: 20050529

REACTIONS (4)
  - DYSARTHRIA [None]
  - FEELING ABNORMAL [None]
  - INTENTIONAL MISUSE [None]
  - OVERDOSE [None]
